FAERS Safety Report 24466879 (Version 1)
Quarter: 2024Q4

REPORT INFORMATION
  Report Type: Report from Study
  Country: US (occurrence: US)
  Receive Date: 20241018
  Receipt Date: 20241018
  Transmission Date: 20250115
  Serious: No
  Sender: ROCHE
  Company Number: US-ROCHE-3554144

PATIENT
  Age: 75 Year
  Sex: Male

DRUGS (5)
  1. XOLAIR [Suspect]
     Active Substance: OMALIZUMAB
     Indication: Asthma
     Route: 058
  2. PROVENTIL [Concomitant]
     Active Substance: ALBUTEROL
  3. HALCION [Concomitant]
     Active Substance: TRIAZOLAM
  4. PULMICORT TURBUHALER [Concomitant]
     Active Substance: BUDESONIDE
  5. EPIPEN [Concomitant]
     Active Substance: EPINEPHRINE

REACTIONS (2)
  - Off label use [Unknown]
  - No adverse event [Unknown]
